FAERS Safety Report 7979692-6 (Version None)
Quarter: 2011Q4

REPORT INFORMATION
  Report Type: 
  Country: None (occurrence: None)
  Receive Date: 20111214
  Receipt Date: 20111209
  Transmission Date: 20120403
  Serious: Yes (Other)
  Sender: FDA-Public Use
  Company Number: US-ROCHE-1008339

PATIENT
  Weight: 57.204 kg

DRUGS (1)
  1. XOLAIR [Suspect]
     Indication: ASTHMA
     Route: 058
     Dates: start: 20090714, end: 20111027

REACTIONS (6)
  - THROAT TIGHTNESS [None]
  - WHEEZING [None]
  - INJECTION SITE SWELLING [None]
  - DYSPNOEA [None]
  - ANAPHYLACTIC REACTION [None]
  - SWELLING FACE [None]
